FAERS Safety Report 9467049 (Version 2)
Quarter: 2014Q4

REPORT INFORMATION
  Report Type: Spontaneous
  Country: DK (occurrence: DK)
  Receive Date: 20130820
  Receipt Date: 20141210
  Transmission Date: 20150529
  Serious: Yes (Congenital Anomaly)
  Sender: FDA-Public Use
  Company Number: DK-GLAXOSMITHKLINE-B0915786A

PATIENT
  Age: 0 Day
  Sex: Male
  Weight: 3.4 kg

DRUGS (5)
  1. ELTROXIN [Concomitant]
     Active Substance: LEVOTHYROXINE
     Indication: HYPOTHYROIDIC GOITRE
     Dosage: UNK UNK, QD
     Route: 064
     Dates: start: 200610
  2. NORITREN [Concomitant]
     Active Substance: NORTRIPTYLINE HYDROCHLORIDE
     Indication: DEPRESSION
     Dosage: 50 MG, TID
     Route: 064
     Dates: start: 20040701
  3. SEROQUEL [Concomitant]
     Active Substance: QUETIAPINE FUMARATE
     Indication: DEPRESSION
     Dosage: UNK UNK, QD
     Route: 064
     Dates: start: 20130101, end: 20130502
  4. LAMICTAL [Suspect]
     Active Substance: LAMOTRIGINE
     Indication: DEPRESSION
     Dosage: 200+300MG
     Route: 064
     Dates: start: 200407
  5. LINDYNETTE [Concomitant]
     Active Substance: ETHINYL ESTRADIOL\GESTODENE
     Indication: CONTRACEPTION
     Dosage: UNK, QD
     Route: 064
     Dates: end: 20130430

REACTIONS (3)
  - Foetal exposure during pregnancy [Recovered/Resolved]
  - Respiration abnormal [Recovered/Resolved]
  - Hypotonia [Recovering/Resolving]

NARRATIVE: CASE EVENT DATE: 20130727
